FAERS Safety Report 5646948-1 (Version None)
Quarter: 2008Q1

REPORT INFORMATION
  Report Type: 
  Country: None (occurrence: None)
  Receive Date: 20080303
  Receipt Date: 20080226
  Transmission Date: 20080703
  Serious: Yes (Death, Hospitalization, Other)
  Sender: FDA-Public Use
  Company Number: KR-ASTRAZENECA-2003AP03109

PATIENT
  Age: 18054 Day
  Sex: Female
  Weight: 65 kg

DRUGS (30)
  1. IRESSA [Suspect]
     Indication: LUNG ADENOCARCINOMA STAGE III
     Route: 048
     Dates: start: 20030128, end: 20030626
  2. IRESSA [Suspect]
     Indication: NON-SMALL CELL LUNG CANCER
     Route: 048
     Dates: start: 20030128, end: 20030626
  3. IRESSA [Suspect]
     Dosage: IRESSA STOPPED AGAIN DUE TO RECURRENCE OF INTERSTITIAL LUNG DISEASE
     Route: 048
     Dates: start: 20030804, end: 20030901
  4. IRESSA [Suspect]
     Dosage: IRESSA STOPPED AGAIN DUE TO RECURRENCE OF INTERSTITIAL LUNG DISEASE
     Route: 048
     Dates: start: 20030804, end: 20030901
  5. VINORELBINE [Concomitant]
     Dosage: 6 COURSES
     Dates: start: 20020220, end: 20020925
  6. CISPLATIN [Concomitant]
     Dosage: 6 COURSES
     Dates: start: 20020220, end: 20020925
  7. GEMZAR [Concomitant]
     Dosage: 4 COURSES
     Dates: start: 20021018, end: 20030119
  8. TAXOL [Concomitant]
     Dosage: 1 COURSE
     Dates: start: 20030121, end: 20030121
  9. METHYRON [Concomitant]
     Indication: INTERSTITIAL LUNG DISEASE
     Dates: start: 20030705
  10. METHYRON [Concomitant]
     Dates: start: 20030804, end: 20030904
  11. CAMPTO [Concomitant]
     Dates: start: 20030924
  12. MEPTIN [Concomitant]
     Indication: DYSPNOEA
     Dates: start: 20030128, end: 20030703
  13. MEPTIN [Concomitant]
     Dates: start: 20030804, end: 20030904
  14. OXYCONTIN [Concomitant]
     Indication: ANTITUSSIVE THERAPY
     Dates: start: 20030128, end: 20030703
  15. OXYCONTIN [Concomitant]
     Dates: start: 20030804, end: 20030904
  16. ALLEGRA [Concomitant]
     Dates: start: 20030804, end: 20030904
  17. CALCITE [Concomitant]
     Indication: OSTEOPOROSIS
     Dates: start: 20030804, end: 20030904
  18. MUCOSTA [Concomitant]
     Dates: start: 20030128, end: 20030703
  19. MUCOSTA [Concomitant]
     Dates: start: 20030804, end: 20030904
  20. ULCERMIN [Concomitant]
     Dates: start: 20030804, end: 20030904
  21. PARIET [Concomitant]
     Dates: start: 20030804, end: 20030904
  22. ALGIRON [Concomitant]
     Indication: PROPHYLAXIS
     Dates: start: 20030128, end: 20030703
  23. ALGIRON [Concomitant]
     Dates: start: 20030804, end: 20030904
  24. ROMANTASE [Concomitant]
     Indication: PROPHYLAXIS
     Dates: start: 20030128, end: 20030703
  25. ROMANTASE [Concomitant]
     Dates: start: 20030804, end: 20030904
  26. TUSTAZOLE [Concomitant]
     Indication: ANTITUSSIVE THERAPY
     Route: 048
     Dates: start: 20030128, end: 20030703
  27. ERDOS [Concomitant]
     Indication: ANTITUSSIVE THERAPY
     Route: 048
     Dates: start: 20030128, end: 20030703
  28. OLYTOLOL [Concomitant]
     Indication: PROPHYLAXIS
     Route: 048
     Dates: start: 20030128, end: 20030703
  29. RATIDIN [Concomitant]
     Indication: PROPHYLAXIS
     Route: 048
     Dates: start: 20030128, end: 20030703
  30. PANORIN [Concomitant]
     Indication: OSTEOPOROSIS
     Route: 048
     Dates: start: 20030804, end: 20030904

REACTIONS (3)
  - CHEST DISCOMFORT [None]
  - DYSPNOEA [None]
  - INTERSTITIAL LUNG DISEASE [None]
